FAERS Safety Report 9698722 (Version 1)
Quarter: 2013Q4

REPORT INFORMATION
  Report Type: Spontaneous
  Country: GB (occurrence: None)
  Receive Date: 20131118
  Receipt Date: 20131118
  Transmission Date: 20140711
  Serious: Yes (Other)
  Sender: FDA-Public Use
  Company Number: SYM-2013-12602

PATIENT
  Age: 65 Year
  Sex: Female

DRUGS (2)
  1. FLUOROURACIL [Suspect]
     Indication: COLORECTAL CANCER
     Dosage: INTRAVENOUS (NOT OTHERWISE SPECIFIED)
  2. LEUCOVORIN [Suspect]
     Indication: COLORECTAL CANCER

REACTIONS (2)
  - Neutropenia [None]
  - Gastrointestinal disorder [None]
